FAERS Safety Report 10045509 (Version 1)
Quarter: 2014Q1

REPORT INFORMATION
  Report Type: Spontaneous
  Country: US (occurrence: US)
  Receive Date: 20140328
  Receipt Date: 20140328
  Transmission Date: 20141002
  Serious: No
  Sender: FDA-Public Use
  Company Number: US-TEVA-471991USA

PATIENT
  Sex: Male

DRUGS (1)
  1. QNASL [Suspect]
     Indication: HYPERSENSITIVITY
     Route: 045

REACTIONS (1)
  - Breath alcohol test positive [Unknown]
